FAERS Safety Report 10829264 (Version 1)
Quarter: 2015Q1

REPORT INFORMATION
  Report Type: Spontaneous
  Country: JP (occurrence: JP)
  Receive Date: 20150219
  Receipt Date: 20150219
  Transmission Date: 20150721
  Serious: Yes (Death, Other)
  Sender: FDA-Public Use
  Company Number: JP-SHIONOGI, INC-2008000598

PATIENT
  Age: 72 Year
  Sex: Female
  Weight: 43 kg

DRUGS (12)
  1. ZYVOX [Concomitant]
     Active Substance: LINEZOLID
     Indication: SEPSIS
     Dosage: DOSAGE FORM: UNSPECIFIED
     Route: 041
     Dates: start: 20080722, end: 20080726
  2. VANCOMYCIN [Suspect]
     Active Substance: VANCOMYCIN
     Route: 041
     Dates: start: 20080716, end: 20080719
  3. PRODIF [Suspect]
     Active Substance: FOSFLUCONAZOLE
     Dosage: 200 MG, QD
     Route: 042
     Dates: start: 20080708, end: 20080719
  4. PREDONINE [Suspect]
     Active Substance: PREDNISOLONE\PREDNISOLONE ACETATE\PREDNISOLONE SODIUM SUCCINATE
     Indication: TOXIC EPIDERMAL NECROLYSIS
     Dosage: 60 MG, QD
     Route: 065
     Dates: start: 20080818
  5. METHYLPREDNISOLONE. [Concomitant]
     Active Substance: METHYLPREDNISOLONE
     Dosage: 1 G, QD
     Route: 065
     Dates: start: 20080825
  6. FINIBAX [Suspect]
     Active Substance: DORIPENEM MONOHYDRATE
     Indication: SEPSIS
     Route: 041
     Dates: start: 20080809, end: 20080811
  7. CIPROXAN [Concomitant]
     Active Substance: CIPROFLOXACIN
     Indication: SEPSIS
     Dosage: DOSAGE FORM: UNSPECIFIED
     Route: 041
     Dates: start: 20080721, end: 20080805
  8. FINIBAX [Suspect]
     Active Substance: DORIPENEM MONOHYDRATE
     Dosage: 0.25 G, BID
     Route: 041
     Dates: start: 20080702, end: 20080722
  9. VANCOMYCIN [Suspect]
     Active Substance: VANCOMYCIN
     Indication: SEPSIS
     Dosage: 0.25 G, QD
     Route: 041
     Dates: start: 20080813, end: 20080818
  10. PREDONINE [Suspect]
     Active Substance: PREDNISOLONE\PREDNISOLONE ACETATE\PREDNISOLONE SODIUM SUCCINATE
     Route: 065
     Dates: start: 20080808, end: 20080815
  11. METHYLPREDNISOLONE. [Concomitant]
     Active Substance: METHYLPREDNISOLONE
     Indication: TOXIC EPIDERMAL NECROLYSIS
     Route: 065
     Dates: start: 20080820, end: 20080822
  12. PRODIF [Suspect]
     Active Substance: FOSFLUCONAZOLE
     Indication: SEPSIS
     Route: 042
     Dates: start: 20080811, end: 20080811

REACTIONS (3)
  - Toxic epidermal necrolysis [Fatal]
  - Sepsis [Fatal]
  - Multi-organ failure [None]

NARRATIVE: CASE EVENT DATE: 20080715
